FAERS Safety Report 8426716-8 (Version None)
Quarter: 2012Q2

REPORT INFORMATION
  Report Type: 
  Country: None (occurrence: None)
  Receive Date: 20120611
  Receipt Date: 20120530
  Transmission Date: 20120825
  Serious: Yes (Other)
  Sender: FDA-Public Use
  Company Number: JP-UCBSA-058892

PATIENT
  Age: 42 Year
  Sex: Male
  Weight: 66 kg

DRUGS (5)
  1. MYSTAN [Concomitant]
     Indication: EPILEPSY
     Dates: end: 20120101
  2. MYSTAN [Concomitant]
     Dates: start: 20120101
  3. KEPPRA [Suspect]
     Indication: EPILEPSY
     Route: 048
     Dates: start: 20120412
  4. PHENYTOIN SODIUM CAP [Concomitant]
     Dosage: DAILY DOSE: 300 MG
     Route: 048
  5. DEPAKENE [Concomitant]
     Dosage: DAILY DOSE: 1200 MG
     Route: 048

REACTIONS (1)
  - EPILEPSY [None]
